FAERS Safety Report 15014842 (Version 6)
Quarter: 2019Q2

REPORT INFORMATION
  Report Type: Spontaneous
  Country: US (occurrence: US)
  Receive Date: 20180615
  Receipt Date: 20190401
  Transmission Date: 20190711
  Serious: Yes (Hospitalization, Other)
  Sender: FDA-Public Use
  Company Number: US-BIOGEN-2018BI00590278

PATIENT
  Age: 8 Year
  Sex: Male

DRUGS (10)
  1. ALBUTEROL. [Concomitant]
     Active Substance: ALBUTEROL
     Indication: PRODUCT USED FOR UNKNOWN INDICATION
     Route: 050
  2. SPINRAZA [Suspect]
     Active Substance: NUSINERSEN
     Indication: SPINAL MUSCULAR ATROPHY
     Route: 050
     Dates: start: 20170629
  3. SODIUM CHLORIDE 7% SOLUTION [Concomitant]
     Indication: PRODUCT USED FOR UNKNOWN INDICATION
     Route: 050
  4. FLINTSTONES COMPLETE [Concomitant]
     Active Substance: VITAMINS
     Indication: PRODUCT USED FOR UNKNOWN INDICATION
     Route: 050
  5. MIRALAX [Concomitant]
     Active Substance: POLYETHYLENE GLYCOL 3350
     Indication: PRODUCT USED FOR UNKNOWN INDICATION
     Dosage: 17 GRAM/DOSE POWDER
     Route: 050
  6. PEPCID [Concomitant]
     Active Substance: FAMOTIDINE
     Indication: PRODUCT USED FOR UNKNOWN INDICATION
     Dosage: 40MG/5ML
     Route: 050
  7. PREVACID [Concomitant]
     Active Substance: LANSOPRAZOLE
     Indication: PRODUCT USED FOR UNKNOWN INDICATION
     Route: 050
  8. ZOFRAN [Concomitant]
     Active Substance: ONDANSETRON HYDROCHLORIDE
     Indication: NAUSEA
     Route: 050
  9. PROVENTIL [Concomitant]
     Active Substance: ALBUTEROL
     Indication: COUGH
     Dosage: 0.5 ML ALBUTEROL MIZED IN 4ML OF HYPER-SAL TWICE DAILY AND Q4 HRS PRN
     Route: 050
  10. HYPERSAL [Concomitant]
     Indication: PRODUCT USED FOR UNKNOWN INDICATION
     Route: 050

REACTIONS (4)
  - Intracranial pressure increased [Not Recovered/Not Resolved]
  - Papilloedema [Unknown]
  - Vomiting [Unknown]
  - Dehydration [Unknown]

NARRATIVE: CASE EVENT DATE: 20180531
